FAERS Safety Report 5966835-9 (Version None)
Quarter: 2008Q4

REPORT INFORMATION
  Report Type: 
  Country: None (occurrence: None)
  Receive Date: 20081125
  Receipt Date: 20081125
  Transmission Date: 20090506
  Serious: Yes (Death)
  Sender: FDA-Public Use
  Company Number: US-ROXANE LABORATORIES, INC.-2008-RO-00292RO

PATIENT
  Sex: Male

DRUGS (3)
  1. MORPHINE [Suspect]
  2. ALPRAZOLAM [Suspect]
  3. OXYCODONE HCL [Suspect]

REACTIONS (1)
  - DRUG TOXICITY [None]
